FAERS Safety Report 8351362-4 (Version None)
Quarter: 2012Q2

REPORT INFORMATION
  Report Type: 
  Country: None (occurrence: None)
  Receive Date: 20120510
  Receipt Date: 20120501
  Transmission Date: 20120825
  Serious: Yes (Hospitalization, Other)
  Sender: FDA-Public Use
  Company Number: DK-ABBOTT-12P-044-0908327-00

PATIENT
  Sex: Female
  Weight: 72 kg

DRUGS (4)
  1. HUMIRA [Suspect]
     Indication: RHEUMATOID ARTHRITIS
     Dates: start: 20080415, end: 20110405
  2. EMTREXATE [Suspect]
     Dates: start: 20120320
  3. REMICADE [Suspect]
     Indication: RHEUMATOID ARTHRITIS
     Dates: start: 20061211, end: 20080401
  4. EMTREXATE [Suspect]
     Indication: RHEUMATOID ARTHRITIS
     Route: 048
     Dates: start: 20061012

REACTIONS (6)
  - RHEUMATOID ARTHRITIS [None]
  - RECTAL CANCER [None]
  - POST PROCEDURAL DISCOMFORT [None]
  - SMALL INTESTINAL OBSTRUCTION [None]
  - RESECTION OF RECTUM [None]
  - ENTEROSTOMY [None]
